FAERS Safety Report 18146933 (Version 2)
Quarter: 2020Q4

REPORT INFORMATION
  Report Type: Report from Study
  Country: US (occurrence: US)
  Receive Date: 20200813
  Receipt Date: 20201006
  Transmission Date: 20210113
  Serious: No
  Sender: FDA-Public Use
  Company Number: NVSC2020US220088

PATIENT
  Age: 61 Year
  Sex: Female

DRUGS (1)
  1. COSENTYX [Suspect]
     Active Substance: SECUKINUMAB
     Indication: PSORIASIS
     Dosage: 150 MG, QMO
     Route: 058
     Dates: start: 201909, end: 202003

REACTIONS (5)
  - Illness [Unknown]
  - Cough [Unknown]
  - Psoriasis [Unknown]
  - Asthma [Unknown]
  - Respiratory symptom [Unknown]

NARRATIVE: CASE EVENT DATE: 201911
